FAERS Safety Report 17978337 (Version 2)
Quarter: 2021Q2

REPORT INFORMATION
  Report Type: Spontaneous
  Country: US (occurrence: US)
  Receive Date: 20200703
  Receipt Date: 20210629
  Transmission Date: 20210717
  Serious: Yes (Hospitalization)
  Sender: FDA-Public Use
  Company Number: US-TEVA-2020-US-1796401

PATIENT
  Sex: Male

DRUGS (2)
  1. LISINOPRIL. [Suspect]
     Active Substance: LISINOPRIL
     Route: 048
  2. LENVIMA [Concomitant]
     Active Substance: LENVATINIB
     Dosage: WAS ON HOLD FROM 04?JUN?2020 TO 08?JUN?2020 DUE TO HOSPITALIZATION AND REACTION

REACTIONS (4)
  - Arthralgia [Not Recovered/Not Resolved]
  - Swollen tongue [Unknown]
  - Blood pressure increased [Unknown]
  - Drug hypersensitivity [Recovered/Resolved]

NARRATIVE: CASE EVENT DATE: 20200604
